FAERS Safety Report 5960395-4 (Version None)
Quarter: 2008Q4

REPORT INFORMATION
  Report Type: 
  Country: None (occurrence: None)
  Receive Date: 20081113
  Receipt Date: 20081030
  Transmission Date: 20090506
  Serious: Yes (Death)
  Sender: FDA-Public Use
  Company Number: 2008-186073-NL

PATIENT
  Sex: Male

DRUGS (2)
  1. TICE BCG [Suspect]
     Indication: BLADDER CANCER
     Route: 043
  2. ACENOCOUMAROL [Concomitant]

REACTIONS (6)
  - BACTERIAL SEPSIS [None]
  - COUGH [None]
  - DISSEMINATED TUBERCULOSIS [None]
  - NO THERAPEUTIC RESPONSE [None]
  - POST PROCEDURAL HAEMORRHAGE [None]
  - URINARY TRACT INFECTION [None]
